FAERS Safety Report 13672925 (Version 1)
Quarter: 2017Q2

REPORT INFORMATION
  Report Type: Spontaneous
  Country: GB (occurrence: GB)
  Receive Date: 20170621
  Receipt Date: 20170621
  Transmission Date: 20170830
  Serious: Yes (Other)
  Sender: FDA-Public Use
  Company Number: GB-TAKEDA-2017TUS013327

PATIENT
  Age: 36 Year

DRUGS (2)
  1. AZATHIOPRINE. [Concomitant]
     Active Substance: AZATHIOPRINE
     Indication: IMMUNOSUPPRESSANT DRUG LEVEL INCREASED
     Dosage: 50 MG, QD
     Dates: start: 2001
  2. ENTYVIO [Suspect]
     Active Substance: VEDOLIZUMAB
     Indication: CROHN^S DISEASE
     Dosage: UNK
     Route: 065
     Dates: start: 201603, end: 201611

REACTIONS (4)
  - Proctitis [Unknown]
  - Anal stenosis [Unknown]
  - Therapy non-responder [Unknown]
  - Rectal stenosis [Unknown]

NARRATIVE: CASE EVENT DATE: 201611
